FAERS Safety Report 7567957-1 (Version None)
Quarter: 2011Q2

REPORT INFORMATION
  Report Type: 
  Country: None (occurrence: None)
  Receive Date: 20110616
  Receipt Date: 20110610
  Transmission Date: 20111010
  Serious: Yes (Other)
  Sender: FDA-Public Use
  Company Number: GER/GER/11/0018693

PATIENT
  Sex: Male
  Weight: 4.03 kg

DRUGS (1)
  1. SERTRALINE HYDROCHLORIDE [Suspect]
     Indication: DRUG EXPOSURE DURING PREGNANCY
     Dosage: TRANSPLACENTAL
     Route: 064

REACTIONS (6)
  - OPISTHOTONUS [None]
  - FEELING JITTERY [None]
  - LARGE FOR DATES BABY [None]
  - TREMOR NEONATAL [None]
  - AGITATION [None]
  - MATERNAL DRUGS AFFECTING FOETUS [None]
